FAERS Safety Report 10188344 (Version 3)
Quarter: 2014Q2

REPORT INFORMATION
  Report Type: Spontaneous
  Country: US (occurrence: US)
  Receive Date: 20140522
  Receipt Date: 20140602
  Transmission Date: 20141212
  Serious: Yes (Hospitalization, Disabling, Other)
  Sender: FDA-Public Use
  Company Number: US-009507513-1105USA00388

PATIENT
  Sex: Female
  Weight: 84.81 kg

DRUGS (5)
  1. FOSAMAX [Suspect]
     Indication: OSTEOPOROSIS
     Dosage: 10 MG, QD
     Route: 048
     Dates: start: 19951203, end: 20080228
  2. FOSAMAX [Suspect]
     Dosage: 70 MG, QW
     Route: 048
     Dates: end: 20080228
  3. CALCIUM (UNSPECIFIED) [Concomitant]
     Dates: start: 1996
  4. VITAMIN D (UNSPECIFIED) [Concomitant]
     Dosage: 50000 U, QD
     Dates: start: 1996
  5. ALENDRONATE SODIUM [Suspect]
     Indication: OSTEOPOROSIS
     Dosage: 70 MG, QW
     Dates: start: 20080228, end: 20080910

REACTIONS (22)
  - Femur fracture [Not Recovered/Not Resolved]
  - Femur fracture [Recovering/Resolving]
  - Loss of consciousness [Unknown]
  - Fall [Unknown]
  - Osteonecrosis [Unknown]
  - Enterobiasis [Unknown]
  - Vulvovaginal pruritus [Unknown]
  - Osteoarthritis [Unknown]
  - Blood cholesterol increased [Unknown]
  - Furuncle [Unknown]
  - Herpes zoster [Unknown]
  - Fall [Unknown]
  - Contusion [Unknown]
  - Bursitis [Unknown]
  - Fibula fracture [Unknown]
  - Knee deformity [Unknown]
  - Tendonitis [Unknown]
  - Impaired healing [Unknown]
  - Spinal column stenosis [Unknown]
  - Wrist fracture [Unknown]
  - Oedema peripheral [Unknown]
  - Drug hypersensitivity [Unknown]
